FAERS Safety Report 6543823-5 (Version None)
Quarter: 2010Q1

REPORT INFORMATION
  Report Type: 
  Country: None (occurrence: None)
  Receive Date: 20100119
  Receipt Date: 20100119
  Transmission Date: 20100710
  Serious: Yes (Life-Threatening, Other)
  Sender: FDA-Public Use
  Company Number: None

PATIENT
  Age: 70 Year
  Sex: Male
  Weight: 77.1115 kg

DRUGS (1)
  1. INTRON A [Suspect]
     Dosage: 1.5 MIU 3X/WK SQ
     Route: 058
     Dates: start: 20091015, end: 20091218

REACTIONS (9)
  - BLOOD URINE PRESENT [None]
  - CARDIAC DISORDER [None]
  - DRY EYE [None]
  - DRY MOUTH [None]
  - DYSPNOEA [None]
  - NASAL ULCER [None]
  - ORAL DISORDER [None]
  - PRODUCT QUALITY ISSUE [None]
  - SKIN EXFOLIATION [None]
